FAERS Safety Report 8594997-6 (Version None)
Quarter: 2012Q3

REPORT INFORMATION
  Report Type: 
  Country: None (occurrence: None)
  Receive Date: 20120815
  Receipt Date: 20120809
  Transmission Date: 20120928
  Serious: Yes (Other)
  Sender: FDA-Public Use
  Company Number: PHEH2012US015722

PATIENT

DRUGS (1)
  1. DIOVAN [Suspect]

REACTIONS (1)
  - JAW FRACTURE [None]
